FAERS Safety Report 6385967-7 (Version None)
Quarter: 2009Q4

REPORT INFORMATION
  Report Type: 
  Country: None (occurrence: None)
  Receive Date: 20091002
  Receipt Date: 20090213
  Transmission Date: 20100525
  Serious: No
  Sender: FDA-Public Use
  Company Number: US-ASTRAZENECA-2009UW04208

PATIENT
  Age: 68 Year
  Sex: Female
  Weight: 86.2 kg

DRUGS (6)
  1. ARIMIDEX [Suspect]
     Indication: BREAST CANCER FEMALE
     Route: 048
     Dates: start: 20090205
  2. HYDROCODONE [Concomitant]
  3. CYMBALTA [Concomitant]
  4. JANUMET [Concomitant]
  5. DIAZEPAM [Concomitant]
  6. MICARDIS HCT [Concomitant]

REACTIONS (3)
  - BALANCE DISORDER [None]
  - EAR PAIN [None]
  - GAIT DISTURBANCE [None]
